FAERS Safety Report 5042099-8 (Version None)
Quarter: 2006Q2

REPORT INFORMATION
  Report Type: 
  Country: None (occurrence: None)
  Receive Date: 20060627
  Receipt Date: 20060615
  Transmission Date: 20061013
  Serious: Yes (Hospitalization)
  Sender: FDA-Public Use
  Company Number: 2006BI004698

PATIENT
  Age: 61 Year
  Sex: Male

DRUGS (12)
  1. AVONEX [Suspect]
     Indication: MULTIPLE SCLEROSIS
     Dosage: 30 UG;QW;IM
     Route: 030
     Dates: start: 20011218
  2. BUPROPION HCL [Concomitant]
  3. OMEPRAZOLE [Concomitant]
  4. TERAZOSIN HCL [Concomitant]
  5. METOPROLOL TARTRATE [Concomitant]
  6. AGGRENOX [Concomitant]
  7. CYLOBENZAPRINE [Concomitant]
  8. RANITIDINE HCL [Concomitant]
  9. ALBUTEROL/IPRATROPIUM INHALER [Concomitant]
  10. VICODIN [Concomitant]
  11. IBUPROFEN [Concomitant]
  12. DIPHENHYDRAMINE HCL [Concomitant]

REACTIONS (4)
  - BALANCE DISORDER [None]
  - FALL [None]
  - GAIT DISTURBANCE [None]
  - HIP FRACTURE [None]
